FAERS Safety Report 11579873 (Version 3)
Quarter: 2015Q4

REPORT INFORMATION
  Report Type: Report from Study
  Country: US (occurrence: US)
  Receive Date: 20150930
  Receipt Date: 20151203
  Transmission Date: 20160304
  Serious: Yes (Hospitalization)
  Sender: FDA-Public Use
  Company Number: US-ELI_LILLY_AND_COMPANY-US201509007351

PATIENT
  Age: 82 Year
  Sex: Female
  Weight: 70.3 kg

DRUGS (1)
  1. FORTEO [Suspect]
     Active Substance: TERIPARATIDE
     Indication: OSTEOPOROSIS
     Dosage: UNK, QD
     Route: 065
     Dates: start: 20150702, end: 20150802

REACTIONS (6)
  - Heart rate increased [Recovered/Resolved]
  - Nausea [Unknown]
  - Fall [Recovered/Resolved]
  - Hip fracture [Recovered/Resolved]
  - Dizziness [Recovered/Resolved]
  - Medication error [Unknown]

NARRATIVE: CASE EVENT DATE: 20150915
